FAERS Safety Report 25860328 (Version 3)
Quarter: 2025Q4

REPORT INFORMATION
  Report Type: Report from Study
  Country: US (occurrence: None)
  Receive Date: 20250929
  Receipt Date: 20251113
  Transmission Date: 20260118
  Serious: Yes (Other)
  Sender: UCB
  Company Number: US-UCBSA-2025017962

PATIENT
  Age: 16 Year
  Weight: 61.2 kg

DRUGS (8)
  1. FENFLURAMINE [Suspect]
     Active Substance: FENFLURAMINE
     Indication: Lennox-Gastaut syndrome
     Dosage: 5.9 MILLILITER, 2X/DAY (BID)
  2. GLYCOPYRROLATE [Suspect]
     Active Substance: GLYCOPYRROLATE
     Indication: Product used for unknown indication
     Dosage: 1 MILLIGRAM, 2X/DAY (BID)
  3. CLOBAZAM [Concomitant]
     Active Substance: CLOBAZAM
     Indication: Product used for unknown indication
     Dosage: 1/2 TABLET IN THE MORNING AND 2 TABLET AT BEDTIME TWICE DAILY
  4. Topi.ram.ate [Concomitant]
     Indication: Product used for unknown indication
     Dosage: 100 MILLIGRAM, 2X/DAY (BID)
  5. clonazePAM 0.5 [Concomitant]
     Indication: Illness
     Dosage: TABLET ON THE TONGUE AND ALLOW TO DISSOLVE ORALLY TWICE A DAY FOR ILLNESS OR BREAKTHROUGH SEIZURES - TWICE DAILY UP TO 3 DAY
  6. clonazePAM 0.5 [Concomitant]
     Indication: Seizure
  7. LACOSAMIDE [Concomitant]
     Active Substance: LACOSAMIDE
     Indication: Product used for unknown indication
     Dosage: 150 MG TABLET L TABLET 2X/DAY (BID)
  8. DIAZEPAM [Concomitant]
     Active Substance: DIAZEPAM
     Indication: Seizure
     Dosage: 20 MG GEL SET DAIL TO 15MG RECTAL PRN FOR SEIZURES} 5 MINUTES OR CLUSTERS OF 3 OR MORE IN I HOUR

REACTIONS (6)
  - Seizure [Unknown]
  - Urinary retention [Unknown]
  - Seizure cluster [Unknown]
  - Agitation [Unknown]
  - Anxiety [Unknown]
  - Drug ineffective [Unknown]
